FAERS Safety Report 6594294-4 (Version None)
Quarter: 2010Q1

REPORT INFORMATION
  Report Type: 
  Country: None (occurrence: None)
  Receive Date: 20100222
  Receipt Date: 20100217
  Transmission Date: 20100710
  Serious: Yes (Hospitalization)
  Sender: FDA-Public Use
  Company Number: FR-MERCK-1002FRA00001

PATIENT
  Age: 45 Year
  Sex: Male
  Weight: 73 kg

DRUGS (6)
  1. ISENTRESS [Suspect]
     Indication: HIV INFECTION
     Route: 048
     Dates: start: 20100106, end: 20100129
  2. MARAVIROC [Concomitant]
     Indication: HIV INFECTION
     Route: 048
     Dates: start: 20100101, end: 20100129
  3. METHOTREXATE [Suspect]
     Indication: BURKITT'S LYMPHOMA
     Route: 042
     Dates: start: 20100126, end: 20100128
  4. CYCLOPHOSPHAMIDE [Concomitant]
     Indication: BURKITT'S LYMPHOMA
     Route: 065
     Dates: end: 20100129
  5. VINCRISTINE SULFATE [Concomitant]
     Indication: BURKITT'S LYMPHOMA
     Route: 065
     Dates: end: 20100129
  6. EMTRICITABINE AND TENOFOVIR DISOPROXIL FUMARATE [Suspect]
     Indication: HIV INFECTION
     Route: 048
     Dates: end: 20100129

REACTIONS (1)
  - RENAL FAILURE ACUTE [None]
